FAERS Safety Report 6674171-0 (Version None)
Quarter: 2010Q2

REPORT INFORMATION
  Report Type: 
  Country: None (occurrence: None)
  Receive Date: 20100407
  Receipt Date: 20100331
  Transmission Date: 20101027
  Serious: Yes (Death, Other)
  Sender: FDA-Public Use
  Company Number: 2008JP005729

PATIENT
  Age: 48 Year
  Sex: Female
  Weight: 52 kg

DRUGS (17)
  1. FUNGUARD (MICAFUNGIN) INJECTION [Suspect]
     Indication: ASPERGILLOSIS
     Dosage: 50 MG, UNKNOWN/D, IV DRIP; 150 MG, UNKNOWN/D, UNKNOWN
     Route: 041
     Dates: start: 20070913, end: 20071004
  2. FUNGUARD (MICAFUNGIN) INJECTION [Suspect]
     Indication: CANDIDIASIS
     Dosage: 50 MG, UNKNOWN/D, IV DRIP; 150 MG, UNKNOWN/D, UNKNOWN
     Route: 041
     Dates: start: 20070913, end: 20071004
  3. FUNGUARD (MICAFUNGIN) INJECTION [Suspect]
     Indication: INFECTION PROPHYLAXIS
     Dosage: 50 MG, UNKNOWN/D, IV DRIP; 150 MG, UNKNOWN/D, UNKNOWN
     Route: 041
     Dates: start: 20070913, end: 20071004
  4. FUNGUARD (MICAFUNGIN) INJECTION [Suspect]
     Indication: ASPERGILLOSIS
     Dosage: 50 MG, UNKNOWN/D, IV DRIP; 150 MG, UNKNOWN/D, UNKNOWN
     Route: 041
     Dates: start: 20071007, end: 20071012
  5. FUNGUARD (MICAFUNGIN) INJECTION [Suspect]
     Indication: CANDIDIASIS
     Dosage: 50 MG, UNKNOWN/D, IV DRIP; 150 MG, UNKNOWN/D, UNKNOWN
     Route: 041
     Dates: start: 20071007, end: 20071012
  6. FUNGUARD (MICAFUNGIN) INJECTION [Suspect]
     Indication: INFECTION PROPHYLAXIS
     Dosage: 50 MG, UNKNOWN/D, IV DRIP; 150 MG, UNKNOWN/D, UNKNOWN
     Route: 041
     Dates: start: 20071007, end: 20071012
  7. CARBENIN (BETAMIPRON, PANIPENEM) INJECTION [Suspect]
     Indication: FEBRILE NEUTROPENIA
     Dosage: 1.5 G, UNKNOWN/D, UNKNOWN
     Dates: start: 20070925
  8. FLUDARABINE PHOSPHATE [Suspect]
     Indication: BONE MARROW CONDITIONING REGIMEN
     Dosage: 43 MG, UNKNOWN/D, UNKNOWN
     Dates: start: 20070913, end: 20070918
  9. BUSULFEX [Suspect]
     Indication: BONE MARROW CONDITIONING REGIMEN
     Dosage: 166.4 MG, UNKNOWN/D, UNKNOWN
     Dates: start: 20070915, end: 20070916
  10. PROGRAF [Suspect]
     Indication: ALLOGENIC BONE MARROW TRANSPLANTATION THERAPY
     Dosage: 0.02 MG/KG, UNKNOWN/D, UNKNOWN
     Dates: start: 20070920, end: 20071226
  11. PREDNISOLONE [Suspect]
     Indication: ALLOGENIC BONE MARROW TRANSPLANTATION THERAPY
     Dosage: 50 MG, UNKNOWN/D, UNKNOWN
     Dates: start: 20071015
  12. METHOTREXATE [Concomitant]
  13. LEVOFLOXACIN [Concomitant]
  14. ZOVIRAX [Concomitant]
  15. EXACIN (ISEPAMICIN SULFATE) [Concomitant]
  16. VANCOMYCIN [Concomitant]
  17. NEUTROGIN (LENOGRASTIM) [Concomitant]

REACTIONS (8)
  - ACUTE GRAFT VERSUS HOST DISEASE [None]
  - ALANINE AMINOTRANSFERASE INCREASED [None]
  - ASPARTATE AMINOTRANSFERASE INCREASED [None]
  - BONE MARROW TRANSPLANT [None]
  - FEBRILE NEUTROPENIA [None]
  - HEPATIC FUNCTION ABNORMAL [None]
  - INFECTION [None]
  - THROMBOTIC MICROANGIOPATHY [None]
